FAERS Safety Report 6257391-9 (Version None)
Quarter: 2009Q3

REPORT INFORMATION
  Report Type: 
  Country: None (occurrence: None)
  Receive Date: 20090706
  Receipt Date: 20090701
  Transmission Date: 20100115
  Serious: Yes (Disabling)
  Sender: FDA-Public Use
  Company Number: US-MERCK-0905USA02282

PATIENT
  Age: 51 Year
  Sex: Male
  Weight: 102 kg

DRUGS (18)
  1. ISENTRESS [Suspect]
     Indication: HIV INFECTION
     Route: 048
     Dates: start: 20090105
  2. TRUVADA [Concomitant]
     Indication: HIV INFECTION
     Route: 048
  3. SUSTIVA [Concomitant]
     Indication: HIV INFECTION
     Route: 048
  4. TOPROL-XL [Concomitant]
     Indication: BLOOD PRESSURE
     Route: 048
  5. ASPIRIN [Concomitant]
     Indication: CARDIAC DISORDER
     Route: 048
  6. PROGRAF [Concomitant]
     Indication: IMMUNOSUPPRESSION
     Route: 048
  7. CELLCEPT [Concomitant]
     Indication: IMMUNOSUPPRESSION
     Route: 048
  8. PREDNISONE [Concomitant]
     Indication: IMMUNOSUPPRESSION
     Route: 048
  9. BACTRIM [Concomitant]
     Route: 048
  10. VALCYTE [Concomitant]
     Route: 048
  11. FAMOTIDINE [Concomitant]
     Indication: GASTROOESOPHAGEAL REFLUX DISEASE
     Route: 048
  12. NORVASC [Concomitant]
     Indication: BLOOD PRESSURE
     Route: 048
  13. CARDURA [Concomitant]
     Indication: BLOOD PRESSURE
     Route: 048
  14. SIMVASTATIN [Concomitant]
     Indication: BLOOD CHOLESTEROL
     Route: 048
  15. FOLIC ACID [Concomitant]
     Indication: ROUTINE HEALTH MAINTENANCE
     Route: 065
  16. FLOMAX (MORNIFLUMATE) [Concomitant]
     Indication: PROSTATIC DISORDER
     Route: 048
  17. AZITHROMYCIN [Concomitant]
     Indication: PROPHYLAXIS
     Route: 048
  18. CATAPRES-TTS-1 [Concomitant]
     Indication: BLOOD PRESSURE
     Route: 061

REACTIONS (15)
  - ABDOMINAL TENDERNESS [None]
  - AMNESIA [None]
  - ARTHRALGIA [None]
  - DYSPNOEA [None]
  - EAR PAIN [None]
  - EYE DISCHARGE [None]
  - HEADACHE [None]
  - MUSCULOSKELETAL STIFFNESS [None]
  - NASOPHARYNGITIS [None]
  - NEUROPATHY PERIPHERAL [None]
  - NIGHT SWEATS [None]
  - OCULAR HYPERAEMIA [None]
  - OTORRHOEA [None]
  - TREMOR [None]
  - WOUND [None]
